FAERS Safety Report 9384765 (Version 1)
Quarter: 2013Q3

REPORT INFORMATION
  Report Type: Report from Study
  Country: LB (occurrence: LB)
  Receive Date: 20130705
  Receipt Date: 20130705
  Transmission Date: 20140515
  Serious: Yes (Hospitalization)
  Sender: FDA-Public Use
  Company Number: LB-SANOFI-AVENTIS-2013SA065154

PATIENT
  Age: 52 Year
  Sex: Female

DRUGS (5)
  1. LANTUS SOLOSTAR [Suspect]
     Indication: DIABETES MELLITUS
     Dosage: THERAPY START: 1 WEEK PRIOR TO REPORTING DOSE:25 UNIT(S)
     Route: 058
     Dates: start: 201306
  2. SOLOSTAR [Suspect]
     Indication: DEVICE THERAPY
     Dates: start: 201306
  3. AMARYL [Concomitant]
     Indication: DIABETES MELLITUS
     Route: 048
  4. METFORMIN [Concomitant]
     Indication: DIABETES MELLITUS
     Route: 048
  5. SERETIDE [Concomitant]
     Route: 048

REACTIONS (1)
  - Asthma [Recovered/Resolved]
